FAERS Safety Report 9680070 (Version 2)
Quarter: 2013Q4

REPORT INFORMATION
  Report Type: Report from Study
  Country: HU (occurrence: HU)
  Receive Date: 20131111
  Receipt Date: 20131115
  Transmission Date: 20140711
  Serious: Yes (Hospitalization)
  Sender: FDA-Public Use
  Company Number: HU-PFIZER INC-2013311672

PATIENT
  Age: 56 Year
  Sex: Male

DRUGS (3)
  1. METHYLPREDNISOLONE [Suspect]
     Indication: RENAL TRANSPLANT
     Dosage: UNK
     Dates: start: 20070821, end: 20131008
  2. CELLCEPT [Suspect]
     Indication: RENAL TRANSPLANT
     Dosage: UNK
     Dates: start: 20070401, end: 20131008
  3. CYCLOSPORINE [Suspect]
     Indication: RENAL TRANSPLANT
     Dosage: 150 MG, UNK
     Route: 048
     Dates: start: 20090128, end: 20131008

REACTIONS (1)
  - Colon cancer [Not Recovered/Not Resolved]
